FAERS Safety Report 14990657 (Version 1)
Quarter: 2018Q2

REPORT INFORMATION
  Report Type: Spontaneous
  Country: US (occurrence: US)
  Receive Date: 20180517
  Receipt Date: 20180517
  Transmission Date: 20180711
  Serious: No
  Sender: FDA-Public Use
  Company Number: None

PATIENT
  Sex: Male

DRUGS (1)
  1. TETRABENAZINE 12.5MG SUN [Suspect]
     Active Substance: TETRABENAZINE
     Indication: CHRONIC TIC DISORDER
     Route: 048
     Dates: start: 20171201

REACTIONS (1)
  - Drug ineffective [None]
